FAERS Safety Report 12998361 (Version 1)
Quarter: 2016Q4

REPORT INFORMATION
  Report Type: Spontaneous
  Country: US (occurrence: US)
  Receive Date: 20161203
  Receipt Date: 20161203
  Transmission Date: 20170207
  Serious: Yes (Disabling)
  Sender: FDA-Public Use
  Company Number: None

PATIENT
  Age: 5 Year
  Sex: Male
  Weight: 17.55 kg

DRUGS (3)
  1. MIRALAX [Suspect]
     Active Substance: POLYETHYLENE GLYCOL 3350
     Indication: CONSTIPATION
     Route: 048
     Dates: end: 20161203
  2. KID^S MULTIVITAMIN GUMMIES COMPLETE--2 GUMMY BEARS/DAY [Concomitant]
  3. MIRALAX [Concomitant]
     Active Substance: POLYETHYLENE GLYCOL 3350

REACTIONS (4)
  - Suicidal ideation [None]
  - Aggression [None]
  - Abnormal behaviour [None]
  - Homicidal ideation [None]

NARRATIVE: CASE EVENT DATE: 20151101
